FAERS Safety Report 10466645 (Version 1)
Quarter: 2014Q3

REPORT INFORMATION
  Report Type: Spontaneous
  Country: US (occurrence: None)
  Receive Date: 20140919
  Receipt Date: 20140919
  Transmission Date: 20150326
  Serious: Yes (Other)
  Sender: FDA-Public Use
  Company Number: None

PATIENT
  Age: 41 Year
  Sex: Male
  Weight: 87.09 kg

DRUGS (1)
  1. ATENOLOL. [Suspect]
     Active Substance: ATENOLOL
     Indication: HYPERTENSION
     Route: 048
     Dates: start: 20140910, end: 20140918

REACTIONS (5)
  - Swelling face [None]
  - Product substitution issue [None]
  - Paraesthesia oral [None]
  - Product quality issue [None]
  - Dry mouth [None]

NARRATIVE: CASE EVENT DATE: 20140918
